FAERS Safety Report 9553034 (Version 1)
Quarter: 2013Q3

REPORT INFORMATION
  Report Type: Other
  Country: GB (occurrence: GB)
  Receive Date: 20130925
  Receipt Date: 20130925
  Transmission Date: 20140515
  Serious: Yes (Death, Other)
  Sender: FDA-Public Use
  Company Number: GB-TARO PHARMACEUTICALS U.S.A., INC-2013SUN04716

PATIENT
  Age: 86 Year
  Sex: Female
  Weight: 54 kg

DRUGS (6)
  1. WARFARIN [Suspect]
     Indication: ATRIAL FIBRILLATION
     Dosage: UNK
     Route: 048
  2. AMIODARONE [Concomitant]
     Dosage: 200 MG, UNK
  3. BISOPROLOL [Concomitant]
     Dosage: 20 MG, UNK
  4. DIGOXIN [Concomitant]
     Dosage: 125 MCG, UNK
  5. PERINDOPRIL [Concomitant]
     Dosage: 4 MG, UNK
  6. SIMVASTATIN [Concomitant]
     Dosage: 40 MG, UNK

REACTIONS (2)
  - Syncope [Unknown]
  - Subdural haematoma [Fatal]
